FAERS Safety Report 24134557 (Version 1)
Quarter: 2024Q3

REPORT INFORMATION
  Report Type: Spontaneous
  Country: US (occurrence: US)
  Receive Date: 20240725
  Receipt Date: 20240725
  Transmission Date: 20241017
  Serious: Yes (Other)
  Sender: UCB
  Company Number: US-UCBSA-2024037279

PATIENT
  Sex: Female

DRUGS (1)
  1. CIMZIA [Suspect]
     Active Substance: CERTOLIZUMAB PEGOL
     Indication: Psoriatic arthropathy
     Dosage: 400 MILLIGRAM, EV 4 WEEKS
     Route: 058

REACTIONS (7)
  - Psoriatic arthropathy [Unknown]
  - Contusion [Unknown]
  - Movement disorder [Unknown]
  - Stress [Unknown]
  - Anxiety [Unknown]
  - Impaired healing [Unknown]
  - Drug ineffective [Unknown]
